FAERS Safety Report 7504506-8 (Version None)
Quarter: 2011Q2

REPORT INFORMATION
  Report Type: 
  Country: None (occurrence: None)
  Receive Date: 20110525
  Receipt Date: 20110512
  Transmission Date: 20111010
  Serious: Yes (Hospitalization)
  Sender: FDA-Public Use
  Company Number: FR-MYLANLABS-2011S1009717

PATIENT
  Age: 42 Year
  Sex: Male

DRUGS (5)
  1. VANCOMYCINE HYDROCHLORIDE [Suspect]
     Indication: PRODUCT USED FOR UNKNOWN INDICATION
     Route: 042
     Dates: start: 20110205, end: 20110219
  2. GEMTAMICINE [Suspect]
     Indication: PRODUCT USED FOR UNKNOWN INDICATION
  3. PIPERACILLIN AND TAZOBACTAM [Suspect]
     Dates: start: 20110205, end: 20110219
  4. VANCOMYCINE HYDROCHLORIDE [Suspect]
     Dates: start: 20110222, end: 20110307
  5. PIPERACILLIN AND TAZOBACTAM [Suspect]
     Indication: PRODUCT USED FOR UNKNOWN INDICATION
     Dates: start: 20110119, end: 20110202

REACTIONS (3)
  - ARTHRALGIA [None]
  - LEUKOCYTOCLASTIC VASCULITIS [None]
  - HAEMATURIA [None]
